FAERS Safety Report 8087051-3 (Version None)
Quarter: 2012Q1

REPORT INFORMATION
  Report Type: 
  Country: None (occurrence: None)
  Receive Date: 20120128
  Receipt Date: 20110523
  Transmission Date: 20120608
  Serious: No
  Sender: FDA-Public Use
  Company Number: US-ABBOTT-11P-163-0727724-00

PATIENT
  Age: 40 Year
  Sex: Female

DRUGS (2)
  1. HUMIRA [Suspect]
     Indication: PSORIASIS
     Dosage: STARTER PACK X2LOADING DOSES DAYS 8 + 22
     Dates: start: 20110307
  2. TIZANIDINE HCL [Concomitant]
     Indication: MUSCLE SPASMS
     Dosage: AS REQUIRED
     Route: 048

REACTIONS (5)
  - INJECTION SITE ERYTHEMA [None]
  - DIZZINESS [None]
  - INJECTION SITE SWELLING [None]
  - INJECTION SITE PRURITUS [None]
  - NAUSEA [None]
